FAERS Safety Report 9783860 (Version 1)
Quarter: 2013Q4

REPORT INFORMATION
  Report Type: Spontaneous
  Country: MX (occurrence: MX)
  Receive Date: 20131226
  Receipt Date: 20131226
  Transmission Date: 20140711
  Serious: Yes (Hospitalization)
  Sender: FDA-Public Use
  Company Number: PHHY2013MX150160

PATIENT
  Age: 80 Year
  Sex: Male

DRUGS (3)
  1. CO-DIOVAN [Suspect]
     Dosage: 1 DF (VALS 160 MG, HCTZ 25 MG), DAILY
     Dates: start: 200001, end: 20131122
  2. EXFORGE [Suspect]
     Dosage: 1 DF (VALS 160 MG/ AMLO 5 MG), DAILY
     Dates: start: 20131123, end: 20131204
  3. EXFORGE [Suspect]
     Dosage: 1 DF (VALS 160 MG/ AMLO 5 MG), DAILY

REACTIONS (7)
  - Adenocarcinoma [Not Recovered/Not Resolved]
  - Prostatic pain [Not Recovered/Not Resolved]
  - Urinary tract obstruction [Unknown]
  - Blood urine present [Recovered/Resolved]
  - Hypertension [Unknown]
  - Urinary tract infection [Not Recovered/Not Resolved]
  - Pyrexia [Recovered/Resolved]
